FAERS Safety Report 6852069-2 (Version None)
Quarter: 2010Q3

REPORT INFORMATION
  Report Type: 
  Country: None (occurrence: None)
  Receive Date: 20100717
  Receipt Date: 20080102
  Transmission Date: 20110219
  Serious: No
  Sender: FDA-Public Use
  Company Number: US-PFIZER INC-2007095304

PATIENT
  Sex: Female
  Weight: 56.4 kg

DRUGS (5)
  1. CHANTIX [Suspect]
     Indication: SMOKING CESSATION THERAPY
     Dates: start: 20071031, end: 20071105
  2. LITHIUM [Concomitant]
  3. LEVOTHYROXINE SODIUM [Concomitant]
     Indication: THYROID DISORDER
  4. ALPRAZOLAM [Concomitant]
  5. COPAXONE [Concomitant]
     Indication: MULTIPLE SCLEROSIS

REACTIONS (5)
  - ANXIETY [None]
  - INSOMNIA [None]
  - NIGHTMARE [None]
  - PANIC DISORDER [None]
  - SLEEP TERROR [None]
